FAERS Safety Report 5202120-0 (Version None)
Quarter: 2007Q1

REPORT INFORMATION
  Report Type: 
  Country: None (occurrence: None)
  Receive Date: 20070103
  Receipt Date: 20061220
  Transmission Date: 20070707
  Serious: Yes (Disabling)
  Sender: FDA-Public Use
  Company Number: 2004-116415-NL

PATIENT
  Age: 54 Year
  Sex: Male

DRUGS (4)
  1. DANAPAROID SODIUM [Suspect]
     Indication: THROMBOSIS
     Dosage: 1500 ANTI_XA SUBCUTANEOUS
     Route: 058
     Dates: start: 20030121
  2. HEPARIN [Suspect]
     Dosage: INTRAVENOUS (NOS)
     Route: 042
     Dates: start: 20030120, end: 20030121
  3. ENOXAPARIN SODIUM [Suspect]
     Dosage: SUBCUTANEOUS
     Route: 058
     Dates: start: 20030115, end: 20030120
  4. ENOXAPARIN SODIUM [Suspect]
     Dosage: SUBCUTANEOUS
     Route: 058
     Dates: start: 20030108, end: 20030115

REACTIONS (6)
  - AMPUTATION REVISION [None]
  - ANTI-PLATELET ANTIBODY POSITIVE [None]
  - JOINT DISLOCATION [None]
  - LEG AMPUTATION [None]
  - NECROSIS ISCHAEMIC [None]
  - THROMBOCYTOPENIA [None]
